FAERS Safety Report 21559227 (Version 1)
Quarter: 2022Q4

REPORT INFORMATION
  Report Type: Report from Study
  Country: US (occurrence: US)
  Receive Date: 20221107
  Receipt Date: 20221107
  Transmission Date: 20230112
  Serious: No
  Sender: FDA-Public Use
  Company Number: US-002147023-NVSC2022US248951

PATIENT
  Age: 39 Year
  Sex: Male

DRUGS (3)
  1. EGATEN [Suspect]
     Active Substance: TRICLABENDAZOLE
     Indication: Trematode infection
     Dosage: 250 MG, BID
     Route: 048
     Dates: start: 20220613
  2. EGATEN [Suspect]
     Active Substance: TRICLABENDAZOLE
     Indication: Diarrhoea
  3. EGATEN [Suspect]
     Active Substance: TRICLABENDAZOLE
     Indication: Abdominal pain

REACTIONS (1)
  - Chest discomfort [Recovered/Resolved]

NARRATIVE: CASE EVENT DATE: 20221031
